FAERS Safety Report 16777328 (Version 2)
Quarter: 2019Q4

REPORT INFORMATION
  Report Type: Spontaneous
  Country: CA (occurrence: CA)
  Receive Date: 20190905
  Receipt Date: 20191227
  Transmission Date: 20200122
  Serious: Yes (Other)
  Sender: FDA-Public Use
  Company Number: CA-TEVA-2019-CA-1102228

PATIENT
  Age: 75 Year
  Sex: Female

DRUGS (2)
  1. TRIMETHOPRIM-SULFAMETHOXAZOLE [Suspect]
     Active Substance: SULFAMETHOXAZOLE\TRIMETHOPRIM
     Indication: URINARY TRACT INFECTION
     Route: 065
  2. WARFARIN SODIUM. [Interacting]
     Active Substance: WARFARIN SODIUM
     Indication: PRODUCT USED FOR UNKNOWN INDICATION
     Route: 065

REACTIONS (3)
  - Drug interaction [Unknown]
  - Anticoagulation drug level above therapeutic [Unknown]
  - Labelled drug-drug interaction medication error [Unknown]
